FAERS Safety Report 7542790-5 (Version None)
Quarter: 2011Q2

REPORT INFORMATION
  Report Type: 
  Country: None (occurrence: None)
  Receive Date: 20110613
  Receipt Date: 20110531
  Transmission Date: 20111010
  Serious: Yes (Hospitalization)
  Sender: FDA-Public Use
  Company Number: FR-JNJFOC-20110600877

PATIENT
  Age: 69 Year
  Sex: Female

DRUGS (15)
  1. LEVOFLOXACIN [Suspect]
     Indication: OSTEOARTHRITIS
     Route: 048
     Dates: start: 20101123, end: 20101201
  2. PYOSTACINE [Concomitant]
     Route: 065
     Dates: start: 20101123, end: 20101229
  3. PANTOPRAZOLE [Concomitant]
     Route: 065
     Dates: start: 20101202
  4. ZOLPIDEM [Concomitant]
     Route: 065
  5. SOTALOL HCL [Concomitant]
     Route: 065
  6. VALSARTAN [Concomitant]
     Route: 065
  7. RIFAMPICIN [Concomitant]
     Route: 065
     Dates: start: 20101229
  8. OFLOXACIN [Suspect]
     Route: 048
     Dates: start: 20101229, end: 20110107
  9. OFLOXACIN [Suspect]
     Indication: OSTEOARTHRITIS
     Route: 048
     Dates: start: 20101204, end: 20101228
  10. CALCIPARINE [Suspect]
     Indication: PRODUCT USED FOR UNKNOWN INDICATION
     Route: 050
     Dates: start: 20101210, end: 20110109
  11. LASIX [Concomitant]
     Route: 065
  12. PREVISCAN (FLUINDIONE) [Concomitant]
     Route: 065
  13. LEVOTHYROXINE SODIUM [Concomitant]
     Route: 065
  14. ALLOPURINOL [Concomitant]
     Route: 065
  15. ACETAMINOPHEN [Concomitant]
     Route: 065

REACTIONS (4)
  - TUBULOINTERSTITIAL NEPHRITIS [None]
  - RENAL FAILURE ACUTE [None]
  - EOSINOPHILIA [None]
  - BLOOD CREATININE INCREASED [None]
